FAERS Safety Report 4327488-9 (Version None)
Quarter: 2004Q1

REPORT INFORMATION
  Report Type: 
  Country: None (occurrence: None)
  Receive Date: 20040329
  Receipt Date: 20040329
  Transmission Date: 20041129
  Serious: No
  Sender: FDA-Public Use
  Company Number: None

PATIENT
  Age: 67 Year
  Sex: Male
  Weight: 98.4306 kg

DRUGS (6)
  1. CRESTOR [Suspect]
     Indication: BLOOD CHOLESTEROL INCREASED
     Dosage: 10 MG PO DAILY
     Route: 048
     Dates: start: 20031204, end: 20040105
  2. AVANDIA [Concomitant]
  3. DIOVAN [Concomitant]
  4. HYDROCHLOROTHIAZIDE [Concomitant]
  5. COREG [Concomitant]
  6. FEOSOL [Concomitant]

REACTIONS (8)
  - ABDOMINAL DISCOMFORT [None]
  - DECREASED APPETITE [None]
  - HEPATOSPLENOMEGALY [None]
  - LIVER FUNCTION TEST ABNORMAL [None]
  - LOOSE STOOLS [None]
  - NAUSEA [None]
  - ULTRASOUND SCAN ABNORMAL [None]
  - WEIGHT INCREASED [None]
